FAERS Safety Report 7968664-3 (Version None)
Quarter: 2011Q4

REPORT INFORMATION
  Report Type: 
  Country: None (occurrence: None)
  Receive Date: 20111209
  Receipt Date: 20111205
  Transmission Date: 20120403
  Serious: Yes (Other)
  Sender: FDA-Public Use
  Company Number: US-GLAXOSMITHKLINE-A0957388A

PATIENT
  Sex: Male

DRUGS (1)
  1. VALACYCLOVIR [Suspect]
     Indication: PROPHYLAXIS
     Dates: start: 20010101

REACTIONS (4)
  - MALAISE [None]
  - RASH [None]
  - LUPUS-LIKE SYNDROME [None]
  - ARTHRALGIA [None]
